FAERS Safety Report 6858329-3 (Version None)
Quarter: 2010Q3

REPORT INFORMATION
  Report Type: 
  Country: None (occurrence: None)
  Receive Date: 20100719
  Receipt Date: 20080512
  Transmission Date: 20110219
  Serious: Yes (Other)
  Sender: FDA-Public Use
  Company Number: US-PFIZER INC-2008011832

PATIENT
  Sex: Female
  Weight: 102.1 kg

DRUGS (3)
  1. CHANTIX [Suspect]
     Indication: SMOKING CESSATION THERAPY
     Route: 048
     Dates: start: 20080121, end: 20080128
  2. ORAL CONTRACEPTIVE NOS [Concomitant]
  3. VITAMINS [Concomitant]

REACTIONS (3)
  - ABNORMAL DREAMS [None]
  - DEPRESSION [None]
  - DRUG INEFFECTIVE [None]
